FAERS Safety Report 22836181 (Version 2)
Quarter: 2023Q4

REPORT INFORMATION
  Report Type: Report from Study
  Country: FR (occurrence: None)
  Receive Date: 20230818
  Receipt Date: 20231128
  Transmission Date: 20240110
  Serious: No
  Sender: FDA-Public Use
  Company Number: FR-ROCHE-3406988

PATIENT
  Age: 56 Year
  Sex: Female
  Weight: 47.5 kg

DRUGS (3)
  1. BEVACIZUMAB [Suspect]
     Active Substance: BEVACIZUMAB
     Indication: Cervix carcinoma
     Dosage: DATE OF LAST ADMINISTRATION: 29/OCT/2020
     Route: 042
     Dates: start: 20200416
  2. CISPLATIN [Suspect]
     Active Substance: CISPLATIN
     Indication: Cervix carcinoma
     Dosage: DATE OF LAST ADMINISTRATION: 10/SEP/2020
     Route: 042
     Dates: start: 20200416
  3. PACLITAXEL [Suspect]
     Active Substance: PACLITAXEL
     Indication: Cervix carcinoma
     Dosage: DATE OF LAST ADMINISTRATION: 10/SEP/2020
     Route: 042
     Dates: start: 20200416

REACTIONS (1)
  - Female genital tract fistula [Not Recovered/Not Resolved]

NARRATIVE: CASE EVENT DATE: 20201125
